FAERS Safety Report 4378863-8 (Version None)
Quarter: 2004Q2

REPORT INFORMATION
  Report Type: 
  Country: None (occurrence: None)
  Receive Date: 20040609
  Receipt Date: 20040525
  Transmission Date: 20050107
  Serious: No
  Sender: FDA-Public Use
  Company Number: D01200401867

PATIENT
  Age: 62 Year
  Sex: Male

DRUGS (7)
  1. (FONDAPARINUX) - SOLUTION [Suspect]
     Indication: ANGINA PECTORIS
     Dosage: 2.5 MG QD, SUBCUTANEOUS
     Route: 058
     Dates: start: 20040203, end: 20040206
  2. ASPIRIN [Concomitant]
  3. PLAVIX [Concomitant]
  4. GEMFIBROZIL [Concomitant]
  5. METOPROLOL TARTRATE [Concomitant]
  6. IMDUR [Concomitant]
  7. PRINIVIL [Concomitant]

REACTIONS (2)
  - CATHETER RELATED COMPLICATION [None]
  - DRUG INEFFECTIVE [None]
